FAERS Safety Report 6645374-6 (Version None)
Quarter: 2010Q1

REPORT INFORMATION
  Report Type: 
  Country: None (occurrence: None)
  Receive Date: 20100322
  Receipt Date: 20100319
  Transmission Date: 20100710
  Serious: Yes (Hospitalization, Other)
  Sender: FDA-Public Use
  Company Number: US-MERCK-0910USA03024

PATIENT
  Age: 51 Year
  Sex: Male

DRUGS (5)
  1. FOSAMAX [Suspect]
     Indication: OSTEOPOROSIS
     Route: 048
     Dates: start: 20020318, end: 20080701
  2. FOSAMAX [Suspect]
     Indication: OSTEOPENIA
     Route: 048
     Dates: start: 20020318, end: 20080701
  3. LISINOPRIL [Concomitant]
     Route: 065
     Dates: start: 20000101
  4. HYDROCHLOROTHIAZIDE [Concomitant]
     Route: 065
     Dates: start: 20010101
  5. RANITIDINE [Concomitant]
     Route: 065
     Dates: start: 20000101

REACTIONS (7)
  - ADVERSE EVENT [None]
  - ANKLE FRACTURE [None]
  - BLOOD CHOLESTEROL INCREASED [None]
  - FEMUR FRACTURE [None]
  - FRACTURE [None]
  - LOW TURNOVER OSTEOPATHY [None]
  - TRIGGER FINGER [None]
